FAERS Safety Report 5208794-2 (Version None)
Quarter: 2007Q1

REPORT INFORMATION
  Report Type: 
  Country: None (occurrence: None)
  Receive Date: 20070116
  Receipt Date: 20070110
  Transmission Date: 20070707
  Serious: Yes (Other)
  Sender: FDA-Public Use
  Company Number: 2007UW00548

PATIENT
  Age: 49 Year
  Sex: Female

DRUGS (3)
  1. FASLODEX [Suspect]
     Indication: BREAST CANCER FEMALE
     Route: 030
  2. HERCEPTIN [Concomitant]
  3. AREDIA [Concomitant]

REACTIONS (2)
  - DEVICE RELATED INFECTION [None]
  - TUMOUR MARKER INCREASED [None]
